FAERS Safety Report 7164036-2 (Version None)
Quarter: 2010Q4

REPORT INFORMATION
  Report Type: 
  Country: None (occurrence: None)
  Receive Date: 20101215
  Receipt Date: 20101206
  Transmission Date: 20110411
  Serious: Yes (Life-Threatening, Hospitalization)
  Sender: FDA-Public Use
  Company Number: B0686094A

PATIENT
  Age: 88 Year
  Sex: Female

DRUGS (4)
  1. ARIXTRA [Suspect]
     Dosage: 2.5MG PER DAY
     Route: 058
     Dates: start: 20100928, end: 20101001
  2. ROCEPHIN [Concomitant]
     Route: 042
  3. LERCANIDIPINE [Concomitant]
     Dosage: 10MG IN THE MORNING
     Route: 065
  4. EZETROL [Concomitant]
     Dosage: 1UNIT IN THE MORNING
     Route: 065

REACTIONS (5)
  - HAEMATEMESIS [None]
  - NORMOCHROMIC NORMOCYTIC ANAEMIA [None]
  - SHOCK HAEMORRHAGIC [None]
  - THROMBOCYTOSIS [None]
  - UPPER GASTROINTESTINAL HAEMORRHAGE [None]
